FAERS Safety Report 11474933 (Version 1)
Quarter: 2015Q3

REPORT INFORMATION
  Report Type: Spontaneous
  Country: AU (occurrence: None)
  Receive Date: 20150908
  Receipt Date: 20150908
  Transmission Date: 20151125
  Serious: Yes (Other)
  Sender: FDA-Public Use
  Company Number: None

PATIENT
  Age: 35 Year
  Sex: Female
  Weight: 65 kg

DRUGS (1)
  1. NICABATE [Suspect]
     Active Substance: NICOTINE
     Route: 048

REACTIONS (4)
  - Teeth brittle [None]
  - Drug dependence [None]
  - Product quality issue [None]
  - Tooth injury [None]
